FAERS Safety Report 10844391 (Version 1)
Quarter: 2015Q1

REPORT INFORMATION
  Report Type: Spontaneous
  Country: CN (occurrence: CN)
  Receive Date: 20150220
  Receipt Date: 20150220
  Transmission Date: 20150721
  Serious: Yes (Other)
  Sender: FDA-Public Use
  Company Number: CN-BAXTER-2015BAX009165

PATIENT
  Age: 54 Year
  Sex: Female

DRUGS (6)
  1. PREDNISONE. [Concomitant]
     Active Substance: PREDNISONE
     Indication: CHRONIC GRAFT VERSUS HOST DISEASE
     Route: 065
  2. ENDOXAN 1G [Suspect]
     Active Substance: CYCLOPHOSPHAMIDE
     Indication: ACQUIRED HAEMOPHILIA
     Route: 065
  3. ENDOXAN 1G [Suspect]
     Active Substance: CYCLOPHOSPHAMIDE
     Indication: OFF LABEL USE
  4. RITUXIMAB [Concomitant]
     Active Substance: RITUXIMAB
     Indication: FACTOR VIII INHIBITION
     Dosage: 4 DOSES
     Route: 065
  5. PREDNISONE. [Concomitant]
     Active Substance: PREDNISONE
     Indication: ACQUIRED HAEMOPHILIA
  6. RITUXIMAB [Concomitant]
     Active Substance: RITUXIMAB
     Indication: SOFT TISSUE HAEMORRHAGE
     Dosage: 1 DOSE
     Route: 065

REACTIONS (2)
  - Factor VIII inhibition [Recovered/Resolved]
  - Soft tissue haemorrhage [Recovered/Resolved]
